FAERS Safety Report 15038213 (Version 2)
Quarter: 2018Q2

REPORT INFORMATION
  Report Type: Spontaneous
  Country: ES (occurrence: ES)
  Receive Date: 20180620
  Receipt Date: 20180625
  Transmission Date: 20180711
  Serious: Yes (Hospitalization)
  Sender: FDA-Public Use
  Company Number: ES-TAKEDA-2018MPI008096

PATIENT
  Age: 73 Year
  Sex: Male

DRUGS (5)
  1. RANITIDINE. [Concomitant]
     Active Substance: RANITIDINE
     Dosage: 150 MG, Q12H
     Route: 048
     Dates: start: 20170915
  2. BORTEZOMIB [Suspect]
     Active Substance: BORTEZOMIB
     Indication: PLASMA CELL MYELOMA
     Dosage: 2 MG, QD
     Route: 058
     Dates: start: 20170915
  3. PARACETAMOL [Concomitant]
     Active Substance: ACETAMINOPHEN
     Dosage: 1 G, Q8HR
     Route: 042
     Dates: start: 20170907
  4. DEXAMETHASONE. [Suspect]
     Active Substance: DEXAMETHASONE
     Indication: PLASMA CELL MYELOMA
     Dosage: 40 MG, QD
     Route: 048
     Dates: start: 20170915
  5. NIFEDIPINE. [Concomitant]
     Active Substance: NIFEDIPINE
     Dosage: 30 MG, UNK
     Route: 048
     Dates: start: 20170907

REACTIONS (2)
  - Atrial fibrillation [Recovered/Resolved]
  - Ischaemic hepatitis [Recovered/Resolved]

NARRATIVE: CASE EVENT DATE: 20170928
